FAERS Safety Report 6962755-1 (Version None)
Quarter: 2010Q3

REPORT INFORMATION
  Report Type: 
  Country: None (occurrence: None)
  Receive Date: 20100902
  Receipt Date: 20100830
  Transmission Date: 20110219
  Serious: Yes (Death, Hospitalization)
  Sender: FDA-Public Use
  Company Number: LB-SANOFI-AVENTIS-2010SA051664

PATIENT
  Sex: Male

DRUGS (12)
  1. PLAVIX [Suspect]
     Indication: ACUTE CORONARY SYNDROME
     Route: 048
     Dates: start: 20100604, end: 20100820
  2. PLAVIX [Suspect]
     Route: 048
     Dates: start: 20100604, end: 20100820
  3. PLAVIX [Suspect]
     Indication: CORONARY ARTERIAL STENT INSERTION
     Route: 048
     Dates: start: 20100604, end: 20100820
  4. PLAVIX [Suspect]
     Indication: PERCUTANEOUS CORONARY INTERVENTION
     Route: 048
     Dates: start: 20100604, end: 20100820
  5. PLAVIX [Suspect]
     Route: 048
  6. PLAVIX [Suspect]
     Route: 048
  7. PLAVIX [Suspect]
     Route: 048
  8. PLAVIX [Suspect]
     Route: 048
  9. PLAVIX [Suspect]
     Route: 048
  10. PLAVIX [Suspect]
     Route: 048
  11. PLAVIX [Suspect]
     Route: 048
  12. PLAVIX [Suspect]
     Route: 048

REACTIONS (5)
  - CARDIAC ARREST [None]
  - CHEST PAIN [None]
  - DRUG INEFFECTIVE [None]
  - OVERDOSE [None]
  - THROMBOSIS IN DEVICE [None]
